FAERS Safety Report 5690455-7 (Version None)
Quarter: 2008Q2

REPORT INFORMATION
  Report Type: 
  Country: None (occurrence: None)
  Receive Date: 20080401
  Receipt Date: 20031119
  Transmission Date: 20081010
  Serious: Yes (Death, Hospitalization)
  Sender: FDA-Public Use
  Company Number: US-ROCHE-352284

PATIENT
  Age: 48 Year
  Sex: Male

DRUGS (1)
  1. FUZEON [Suspect]
     Route: 058
     Dates: start: 20030701

REACTIONS (2)
  - CRYPTOSPORIDIOSIS INFECTION [None]
  - DISEASE PROGRESSION [None]
